FAERS Safety Report 5342175-6 (Version None)
Quarter: 2007Q2

REPORT INFORMATION
  Report Type: 
  Country: None (occurrence: None)
  Receive Date: 20070601
  Receipt Date: 20070524
  Transmission Date: 20071010
  Serious: Yes (Hospitalization)
  Sender: FDA-Public Use
  Company Number: B0469822A

PATIENT
  Age: 59 Year
  Sex: Male

DRUGS (6)
  1. ARIXTRA [Suspect]
     Indication: CATHETER THROMBOSIS
     Dosage: 7.5MG PER DAY
     Route: 058
     Dates: start: 20070110, end: 20070317
  2. FLUOROURACIL [Suspect]
     Indication: CHEMOTHERAPY
     Route: 042
     Dates: start: 20070219
  3. CAMPTOSAR [Suspect]
     Indication: CHEMOTHERAPY
     Dosage: 1600MG PER DAY
     Route: 042
     Dates: start: 20070219
  4. KARDEGIC [Concomitant]
     Dosage: 75MG PER DAY
  5. PERINDOPRIL ERBUMINE [Concomitant]
     Dosage: 4MG PER DAY
  6. ISOPTIN [Concomitant]
     Dosage: 120MG TWICE PER DAY

REACTIONS (7)
  - ERYTHEMA [None]
  - MUSCLE DISORDER [None]
  - MUSCLE FATIGUE [None]
  - OEDEMA PERIPHERAL [None]
  - PARANEOPLASTIC DERMATOMYOSITIS [None]
  - RHABDOMYOLYSIS [None]
  - TELANGIECTASIA [None]
